FAERS Safety Report 9517591 (Version 2)
Quarter: 2013Q3

REPORT INFORMATION
  Report Type: Report from Study
  Country: US (occurrence: US)
  Receive Date: 20130912
  Receipt Date: 20130912
  Transmission Date: 20140515
  Serious: Yes (Death)
  Sender: FDA-Public Use
  Company Number: US-ROCHE-1201736

PATIENT
  Sex: Male

DRUGS (1)
  1. XELODA [Suspect]
     Indication: PRODUCT USED FOR UNKNOWN INDICATION
     Dosage: 14 DAYS OFF 7 DAYS.
     Route: 065

REACTIONS (5)
  - Gastric disorder [Unknown]
  - Weight decreased [Unknown]
  - Nausea [Unknown]
  - Constipation [Unknown]
  - Death [Fatal]
